FAERS Safety Report 6570325-2 (Version None)
Quarter: 2010Q1

REPORT INFORMATION
  Report Type: 
  Country: None (occurrence: None)
  Receive Date: 20100204
  Receipt Date: 20100104
  Transmission Date: 20100710
  Serious: No
  Sender: FDA-Public Use
  Company Number: US-BAYER-201010306NA

PATIENT
  Sex: Female
  Weight: 79 kg

DRUGS (15)
  1. MOXIFLOXACIN HCL [Suspect]
     Indication: DRUG USE FOR UNKNOWN INDICATION
  2. METRONIDAZOLE BENZOATE [Concomitant]
  3. ESCITALOPRAM [Concomitant]
  4. PANTOPRAZOLE [Concomitant]
  5. METOPROLOL TARTRATE [Concomitant]
  6. SENNA [Concomitant]
  7. DOCUSATE [Concomitant]
  8. FENTANYL [Concomitant]
  9. BISACODYL [Concomitant]
  10. ASPIRIN [Concomitant]
  11. SIMVASTATIN [Concomitant]
  12. DIAZEPAM [Concomitant]
  13. OXYCODONE HCL [Concomitant]
  14. CLONIDINE [Concomitant]
  15. PARACETAMOL [Concomitant]

REACTIONS (1)
  - HYPERSENSITIVITY [None]
